FAERS Safety Report 5295656-8 (Version None)
Quarter: 2007Q2

REPORT INFORMATION
  Report Type: 
  Country: None (occurrence: None)
  Receive Date: 20070410
  Receipt Date: 20070410
  Transmission Date: 20071010
  Serious: Yes (Hospitalization)
  Sender: FDA-Public Use
  Company Number: None

PATIENT
  Age: 64 Year
  Sex: Female
  Weight: 67.586 kg

DRUGS (5)
  1. LEXAPRO [Suspect]
     Indication: ANXIETY
     Dosage: 10MG 1 TIME/DAY
     Dates: start: 20070402
  2. LEXAPRO [Suspect]
     Indication: CHEST PAIN
     Dosage: 10MG 1 TIME/DAY
     Dates: start: 20070402
  3. LEXAPRO [Suspect]
     Indication: DEPRESSION
     Dosage: 10MG 1 TIME/DAY
     Dates: start: 20070402
  4. LEXAPRO [Suspect]
     Indication: ILL-DEFINED DISORDER
     Dosage: 10MG 1 TIME/DAY
     Dates: start: 20070402
  5. LEVAQUIN [Concomitant]

REACTIONS (5)
  - DIARRHOEA [None]
  - NAUSEA [None]
  - PRESYNCOPE [None]
  - SKIN DISCOLOURATION [None]
  - VOMITING [None]
